FAERS Safety Report 9929233 (Version 1)
Quarter: 2014Q1

REPORT INFORMATION
  Report Type: Spontaneous
  Country: US (occurrence: US)
  Receive Date: 20140227
  Receipt Date: 20140227
  Transmission Date: 20141002
  Serious: Yes (Other)
  Sender: FDA-Public Use
  Company Number: US-TEVA-465257USA

PATIENT
  Sex: Female

DRUGS (1)
  1. ACICLOVIR [Suspect]

REACTIONS (8)
  - Abasia [Unknown]
  - Delusion [Unknown]
  - Amnesia [Unknown]
  - Hallucination [Unknown]
  - Paranoia [Unknown]
  - Aphonia [Unknown]
  - Dysphagia [Unknown]
  - Hypotension [Unknown]
